FAERS Safety Report 8982158 (Version 1)
Quarter: 2012Q4

REPORT INFORMATION
  Report Type: 
  Country: CA (occurrence: CA)
  Receive Date: 20121222
  Receipt Date: 20121222
  Transmission Date: 20130627
  Serious: Yes (Hospitalization)
  Sender: FDA-Public Use
  Company Number: CA-AMGEN-CANSP2012081423

PATIENT
  Age: 64 Year
  Sex: Male
  Weight: 126.36 kg

DRUGS (1)
  1. PROLIA [Suspect]
     Indication: OSTEOPOROSIS
     Dosage: UNK

REACTIONS (6)
  - Arthralgia [Unknown]
  - Oral pain [Unknown]
  - Candidiasis [Unknown]
  - Immunodeficiency [Unknown]
  - Cellulitis [Unknown]
  - Blood calcium decreased [Unknown]
